FAERS Safety Report 7197841-7 (Version None)
Quarter: 2010Q4

REPORT INFORMATION
  Report Type: 
  Country: None (occurrence: None)
  Receive Date: 20101227
  Receipt Date: 20101217
  Transmission Date: 20110411
  Serious: Yes (Other)
  Sender: FDA-Public Use
  Company Number: JP-ROCHE-728048

PATIENT
  Sex: Female
  Weight: 2.4 kg

DRUGS (2)
  1. OSELTAMIVIR [Suspect]
     Indication: ANTIVIRAL PROPHYLAXIS
     Dosage: DRUG:TAMIFLU CAPSULE(OSELTAMIVIR)
     Route: 064
     Dates: start: 20091222, end: 20100101
  2. FLU VACCINATION [Concomitant]

REACTIONS (4)
  - CAESAREAN SECTION [None]
  - DRUG EXPOSURE DURING PREGNANCY [None]
  - JOINT ANKYLOSIS [None]
  - NORMAL NEWBORN [None]
